FAERS Safety Report 5977856-4 (Version None)
Quarter: 2008Q4

REPORT INFORMATION
  Report Type: 
  Country: None (occurrence: None)
  Receive Date: 20081203
  Receipt Date: 20081201
  Transmission Date: 20090506
  Serious: Yes (Other)
  Sender: FDA-Public Use
  Company Number: BR-JNJFOC-20081200678

PATIENT
  Age: 27 Year
  Sex: Female
  Weight: 51 kg

DRUGS (1)
  1. ORTHO EVRA [Suspect]
     Indication: CONTRACEPTION
     Dosage: NORELGESTROMIN (6 MG) / ETHINYL ESTRADIOL (0.6 MG)
     Route: 062

REACTIONS (7)
  - DIZZINESS [None]
  - HYPOTENSION [None]
  - INAPPROPRIATE SCHEDULE OF DRUG ADMINISTRATION [None]
  - MALAISE [None]
  - METRORRHAGIA [None]
  - VISION BLURRED [None]
  - VISUAL IMPAIRMENT [None]
